FAERS Safety Report 6664518-3 (Version None)
Quarter: 2010Q2

REPORT INFORMATION
  Report Type: 
  Country: None (occurrence: None)
  Receive Date: 20100401
  Receipt Date: 20100319
  Transmission Date: 20101027
  Serious: Yes (Death, Hospitalization)
  Sender: FDA-Public Use
  Company Number: US-PFIZER INC-2010027399

PATIENT
  Sex: Male

DRUGS (1)
  1. SUTENT [Suspect]
     Indication: MALIGNANT MELANOMA
     Dosage: 50 MG, UNK
     Route: 048

REACTIONS (2)
  - DISEASE PROGRESSION [None]
  - METASTATIC MALIGNANT MELANOMA [None]
